FAERS Safety Report 10219330 (Version 1)
Quarter: 2014Q2

REPORT INFORMATION
  Report Type: Spontaneous
  Country: JP (occurrence: JP)
  Receive Date: 20140605
  Receipt Date: 20140605
  Transmission Date: 20141212
  Serious: Yes (Hospitalization)
  Sender: FDA-Public Use
  Company Number: PHHY2014JP068742

PATIENT
  Sex: Male

DRUGS (4)
  1. CICLOSPORIN [Suspect]
     Route: 064
  2. AZATHIOPRINE [Suspect]
     Route: 064
  3. METHYLPREDNISOLONE [Suspect]
     Route: 064
  4. PROBENECID [Suspect]
     Route: 064

REACTIONS (17)
  - Foetal growth restriction [Unknown]
  - Transient tachypnoea of the newborn [Unknown]
  - Drug level increased [Recovering/Resolving]
  - Pancytopenia [Recovering/Resolving]
  - Leukopenia neonatal [Unknown]
  - Lymphocytopenia neonatal [Unknown]
  - White blood cell count decreased [Recovering/Resolving]
  - Lymphocyte count decreased [Recovering/Resolving]
  - Haemoglobin decreased [Recovering/Resolving]
  - Thrombocytopenia [Unknown]
  - Low birth weight baby [Unknown]
  - Premature baby [Unknown]
  - Anaemia macrocytic [Recovering/Resolving]
  - Hyperchromic anaemia [Recovering/Resolving]
  - Dyspnoea [Unknown]
  - Exposure during breast feeding [Unknown]
  - Foetal exposure during pregnancy [Unknown]
